FAERS Safety Report 12093637 (Version 1)
Quarter: 2016Q1

REPORT INFORMATION
  Report Type: Spontaneous
  Country: US (occurrence: US)
  Receive Date: 20160219
  Receipt Date: 20160219
  Transmission Date: 20160526
  Serious: No
  Sender: FDA-Public Use
  Company Number: US-PFIZER INC-2016090176

PATIENT
  Age: 50 Year
  Sex: Female
  Weight: 77.46 kg

DRUGS (1)
  1. IBRANCE [Suspect]
     Active Substance: PALBOCICLIB
     Indication: BREAST CANCER
     Dosage: 125 MG, CYCLIC, DAY-1-21 Q 28 DAYS
     Route: 048
     Dates: start: 20151219

REACTIONS (1)
  - Nausea [Recovered/Resolved]
